FAERS Safety Report 10235396 (Version 2)
Quarter: 2014Q2

REPORT INFORMATION
  Report Type: Report from Study
  Country: NZ (occurrence: None)
  Receive Date: 20140611
  Receipt Date: 20140618
  Transmission Date: 20141212
  Serious: Yes (Hospitalization)
  Sender: FDA-Public Use
  Company Number: KAD201406-000596

PATIENT
  Age: 50 Year
  Sex: Male
  Weight: 97 kg

DRUGS (13)
  1. RIBAVIRIN [Suspect]
     Route: 048
     Dates: start: 20140214
  2. SOFOSBUVIR [Suspect]
     Route: 048
     Dates: start: 20140214
  3. NOVORAPID [Concomitant]
  4. QUINAPRIL [Concomitant]
  5. PROTAPHANE [Concomitant]
  6. SIMVASTATIN (SIMVASTATIN) (SIMVASTATIN) [Concomitant]
  7. OMEPRAZOLE (OMEPRAZOLE) (OMEPRAZOLE) [Concomitant]
  8. METFORMIN (METFORMIN) (METFORMIN) [Concomitant]
  9. CHLORPROMAZINE [Concomitant]
  10. THIAMINE [Concomitant]
  11. BUPROPION (BUPROPION) (BUPROPION) [Concomitant]
  12. PROPRANOLOL [Concomitant]
  13. LAXSOL [Concomitant]

REACTIONS (7)
  - Circulatory collapse [None]
  - Alcohol use [None]
  - Fall [None]
  - Haemoglobin decreased [None]
  - Dizziness [None]
  - Syncope [None]
  - Anaemia [None]
